FAERS Safety Report 6855455-X (Version None)
Quarter: 2010Q3

REPORT INFORMATION
  Report Type: 
  Country: None (occurrence: None)
  Receive Date: 20100719
  Receipt Date: 20100712
  Transmission Date: 20110219
  Serious: Yes (Hospitalization, Other)
  Sender: FDA-Public Use
  Company Number: US-TEVA-241187USA

PATIENT
  Age: 59 Year
  Sex: Female

DRUGS (3)
  1. TRAZODONE HCL [Interacting]
  2. ESCITALOPRAM [Suspect]
  3. FENTANYL [Interacting]
     Dosage: 250 UG
     Route: 042

REACTIONS (2)
  - DRUG INTERACTION [None]
  - SEROTONIN SYNDROME [None]
